FAERS Safety Report 7201371-3 (Version None)
Quarter: 2010Q4

REPORT INFORMATION
  Report Type: 
  Country: None (occurrence: None)
  Receive Date: 20101229
  Receipt Date: 20101221
  Transmission Date: 20110411
  Serious: Yes (Other)
  Sender: FDA-Public Use
  Company Number: NL-JNJFOC-20101207184

PATIENT
  Sex: Male
  Weight: 103 kg

DRUGS (4)
  1. RISPERDAL [Suspect]
     Indication: PSYCHOTIC DISORDER
     Route: 048
  2. SELOKEEN [Concomitant]
     Indication: ILL-DEFINED DISORDER
     Route: 065
  3. TRYPTIZOL [Concomitant]
     Indication: ILL-DEFINED DISORDER
     Route: 065
  4. TRYPTIZOL [Concomitant]
     Route: 065

REACTIONS (6)
  - ERECTILE DYSFUNCTION [None]
  - ONYCHOCLASIS [None]
  - PSORIASIS [None]
  - RESTLESSNESS [None]
  - SKIN EXFOLIATION [None]
  - TARDIVE DYSKINESIA [None]
